FAERS Safety Report 22314001 (Version 1)
Quarter: 2023Q2

REPORT INFORMATION
  Report Type: Spontaneous
  Country: US (occurrence: None)
  Receive Date: 20230511
  Receipt Date: 20230511
  Transmission Date: 20230722
  Serious: Yes (Hospitalization, Disabling)
  Sender: FDA-Public Use
  Company Number: None

PATIENT
  Age: 65 Year
  Sex: Female
  Weight: 63.5 kg

DRUGS (6)
  1. ARIMIDEX [Suspect]
     Active Substance: ANASTROZOLE
     Indication: Hormone receptor positive breast cancer
     Dates: start: 202108, end: 202204
  2. WELLBUTRIN [Concomitant]
     Active Substance: BUPROPION HYDROCHLORIDE
  3. SYNTHROID [Concomitant]
     Active Substance: LEVOTHYROXINE SODIUM
  4. PREDNISONE [Concomitant]
     Active Substance: PREDNISONE
  5. REMICADE [Concomitant]
     Active Substance: INFLIXIMAB
  6. MULTIPLE VITAMIN WITH IRON [Concomitant]

REACTIONS (17)
  - Stomatitis [None]
  - Abdominal pain [None]
  - Diarrhoea [None]
  - Urinary tract infection [None]
  - Peripheral swelling [None]
  - Peripheral swelling [None]
  - Proctalgia [None]
  - Rectal haemorrhage [None]
  - Intestinal haemorrhage [None]
  - Muscular weakness [None]
  - Fatigue [None]
  - Gait inability [None]
  - Muscle disorder [None]
  - Anaemia [None]
  - Crohn^s disease [None]
  - Autoimmune disorder [None]
  - Therapy cessation [None]

NARRATIVE: CASE EVENT DATE: 20220201
